FAERS Safety Report 20508587 (Version 1)
Quarter: 2022Q1

REPORT INFORMATION
  Report Type: Spontaneous
  Country: GB (occurrence: None)
  Receive Date: 20220223
  Receipt Date: 20220223
  Transmission Date: 20220423
  Serious: No
  Sender: FDA-Public Use
  Company Number: None

PATIENT
  Age: 70 Year
  Sex: Female
  Weight: 61.2 kg

DRUGS (5)
  1. SOTROVIMAB [Suspect]
     Active Substance: SOTROVIMAB
  2. SIMPONI [Concomitant]
     Active Substance: GOLIMUMAB
  3. OMEPRAZOLE [Concomitant]
     Active Substance: OMEPRAZOLE
  4. AdCal [Concomitant]
  5. Well woman 70+ vitamin [Concomitant]

REACTIONS (10)
  - Infusion site erythema [None]
  - Infusion site swelling [None]
  - Infusion site pain [None]
  - Infusion site pruritus [None]
  - Hyperhidrosis [None]
  - Dizziness [None]
  - Blood pressure increased [None]
  - Syncope [None]
  - Nausea [None]
  - Headache [None]

NARRATIVE: CASE EVENT DATE: 20220219
